FAERS Safety Report 16698810 (Version 1)
Quarter: 2019Q3

REPORT INFORMATION
  Report Type: Spontaneous
  Country: GR (occurrence: GR)
  Receive Date: 20190813
  Receipt Date: 20190813
  Transmission Date: 20191004
  Serious: Yes (Death)
  Sender: FDA-Public Use
  Company Number: GR-MYLANLABS-2019M1075103

PATIENT
  Age: 68 Year
  Sex: Male

DRUGS (5)
  1. NORADRENALINE                      /00127501/ [Suspect]
     Active Substance: NOREPINEPHRINE
     Indication: PRODUCT USED FOR UNKNOWN INDICATION
     Dosage: UNK
  2. COLISTIN [Suspect]
     Active Substance: COLISTIN
     Indication: EVIDENCE BASED TREATMENT
     Dosage: UNK
  3. CEFTAZIDIME PENTAHYDRATE W/TAZOBACTAM SODIUM [Suspect]
     Active Substance: CEFTAZIDIME\TAZOBACTAM SODIUM
     Indication: PRODUCT USED FOR UNKNOWN INDICATION
     Dosage: 0.75 G PER 48 H
  4. VANCOMYCIN [Suspect]
     Active Substance: VANCOMYCIN
     Indication: EVIDENCE BASED TREATMENT
     Dosage: UNK
  5. MEROPENEM. [Suspect]
     Active Substance: MEROPENEM
     Indication: EVIDENCE BASED TREATMENT
     Dosage: UNK

REACTIONS (3)
  - Disease progression [Unknown]
  - Septic shock [Fatal]
  - Haemodynamic instability [Unknown]
